FAERS Safety Report 6505984-3 (Version None)
Quarter: 2009Q4

REPORT INFORMATION
  Report Type: 
  Country: None (occurrence: None)
  Receive Date: 20091218
  Receipt Date: 20091215
  Transmission Date: 20100525
  Serious: Yes (Death)
  Sender: FDA-Public Use
  Company Number: US-GILEAD-2009-0025984

PATIENT
  Sex: Female
  Weight: 63.106 kg

DRUGS (25)
  1. LETAIRIS [Suspect]
     Indication: PULMONARY ARTERIAL HYPERTENSION
     Route: 048
     Dates: start: 20090326
  2. PROTONIX [Concomitant]
  3. DILTIAZEM [Concomitant]
  4. TORSEMIDE [Concomitant]
  5. METOLAZONE [Concomitant]
  6. SIMVASTATIN [Concomitant]
  7. OXYGEN [Concomitant]
  8. REMODULIN [Concomitant]
  9. COMBIVENT [Concomitant]
  10. REVATIO [Concomitant]
  11. SODIUM CHLORIDE [Concomitant]
  12. GABAPENTIN [Concomitant]
  13. AMITRIPTYLINE [Concomitant]
  14. CLONIDINE [Concomitant]
  15. KETAMINE HCL [Concomitant]
  16. KETOPROFEN [Concomitant]
  17. LECITHIN [Concomitant]
  18. LIDOCAINE [Concomitant]
  19. POLOXAMER [Concomitant]
  20. DIPHENOXYLATE HCL + ATROPINE SULFATE [Concomitant]
  21. POTASSIUM CHLORIDE [Concomitant]
  22. BENADRYL [Concomitant]
  23. NOVOLIN 70/30 [Concomitant]
  24. ALBUTEROL [Concomitant]
  25. FERROUS SULFATE TAB [Concomitant]

REACTIONS (1)
  - PULMONARY HYPERTENSION [None]
